FAERS Safety Report 5474604-1 (Version None)
Quarter: 2007Q3

REPORT INFORMATION
  Report Type: 
  Country: None (occurrence: None)
  Receive Date: 20070831
  Receipt Date: 20070508
  Transmission Date: 20080115
  Serious: No
  Sender: FDA-Public Use
  Company Number: 238643

PATIENT
  Age: 94 Year
  Sex: Female

DRUGS (6)
  1. LUCENTIS [Suspect]
     Indication: MACULAR DEGENERATION
     Dates: start: 20070101
  2. COUMADIN [Concomitant]
  3. CARDIZEM [Concomitant]
  4. LANOXIN [Concomitant]
  5. POTASSIUM (POTASSIUM NOS) [Concomitant]
  6. LASIX [Concomitant]

REACTIONS (1)
  - VITREOUS FLOATERS [None]
